FAERS Safety Report 6501676-5 (Version None)
Quarter: 2009Q4

REPORT INFORMATION
  Report Type: 
  Country: None (occurrence: None)
  Receive Date: 20091216
  Receipt Date: 20091205
  Transmission Date: 20100525
  Serious: Yes (Hospitalization)
  Sender: FDA-Public Use
  Company Number: US-AMGEN-QUU378552

PATIENT
  Sex: Female

DRUGS (2)
  1. ENBREL [Suspect]
     Indication: RHEUMATOID ARTHRITIS
     Route: 058
     Dates: start: 20080101
  2. METHOTREXATE [Concomitant]
     Route: 048

REACTIONS (4)
  - CAESAREAN SECTION [None]
  - HYPOAESTHESIA [None]
  - PARAESTHESIA [None]
  - RHEUMATOID ARTHRITIS [None]
